FAERS Safety Report 19238641 (Version 1)
Quarter: 2021Q2

REPORT INFORMATION
  Report Type: Spontaneous
  Country: US (occurrence: US)
  Receive Date: 20210510
  Receipt Date: 20210510
  Transmission Date: 20210717
  Serious: No
  Sender: FDA-Public Use
  Company Number: US-ORGANON-O2105USA000444

PATIENT
  Sex: Female
  Weight: 67.75 kg

DRUGS (1)
  1. NEXPLANON [Suspect]
     Active Substance: ETONOGESTREL
     Indication: CONTRACEPTION
     Dosage: 1 ROD/ 3 YEARS
     Route: 059
     Dates: start: 20200727

REACTIONS (2)
  - Menstrual disorder [Not Recovered/Not Resolved]
  - Heavy menstrual bleeding [Not Recovered/Not Resolved]

NARRATIVE: CASE EVENT DATE: 2020
